FAERS Safety Report 8953855 (Version 1)
Quarter: 2012Q4

REPORT INFORMATION
  Report Type: 
  Country: US (occurrence: US)
  Receive Date: 20121206
  Receipt Date: 20121206
  Transmission Date: 20130627
  Serious: Yes (Other)
  Sender: FDA-Public Use
  Company Number: US-VERTEX PHARMACEUTICALS INC.-2012-025591

PATIENT
  Age: 59 Year
  Sex: Male
  Weight: 89 kg

DRUGS (4)
  1. INCIVEK [Suspect]
     Indication: HEPATITIS C
     Dosage: 750 mg, tid
     Route: 048
     Dates: start: 20120523
  2. PEGASYS [Suspect]
     Indication: HEPATITIS C
     Dosage: 800 mg, bid
     Route: 048
     Dates: start: 20120512
  3. OMEPRAZOLE [Concomitant]
     Dosage: UNK
  4. NORVASC [Concomitant]

REACTIONS (1)
  - Blood creatinine increased [Unknown]
